FAERS Safety Report 18843758 (Version 1)
Quarter: 2021Q1

REPORT INFORMATION
  Report Type: Report from Study
  Country: None (occurrence: US)
  Receive Date: 20210203
  Receipt Date: 20210203
  Transmission Date: 20210419
  Serious: Yes (Hospitalization)
  Sender: FDA-Public Use
  Company Number: US-ABBVIE-21K-163-3756015-00

PATIENT
  Age: 47 Year
  Sex: Female

DRUGS (1)
  1. HUMIRA [Suspect]
     Active Substance: ADALIMUMAB
     Indication: CROHN^S DISEASE
     Dosage: LOADING DOSE
     Route: 058
     Dates: start: 20210116, end: 20210116

REACTIONS (8)
  - Migraine [Not Recovered/Not Resolved]
  - Painful respiration [Not Recovered/Not Resolved]
  - Rash papular [Not Recovered/Not Resolved]
  - Odynophagia [Not Recovered/Not Resolved]
  - Device issue [Unknown]
  - Paranasal sinus hypersecretion [Not Recovered/Not Resolved]
  - Pain [Not Recovered/Not Resolved]
  - Incorrect dose administered [Unknown]

NARRATIVE: CASE EVENT DATE: 20210116
